FAERS Safety Report 18636170 (Version 2)
Quarter: 2020Q4

REPORT INFORMATION
  Report Type: Spontaneous
  Country: JP (occurrence: JP)
  Receive Date: 20201218
  Receipt Date: 20201230
  Transmission Date: 20210114
  Serious: Yes (Hospitalization)
  Sender: FDA-Public Use
  Company Number: JP-FERRINGPH-2020FE08870

PATIENT
  Age: 88 Year
  Sex: Male

DRUGS (6)
  1. DESMOPRESSIN KYOWA [Suspect]
     Active Substance: DESMOPRESSIN
     Dosage: 40 UG, DAILY
     Route: 065
     Dates: start: 2020, end: 2020
  2. DESMOPRESSIN KYOWA [Suspect]
     Active Substance: DESMOPRESSIN
     Dosage: UNK
     Route: 065
     Dates: start: 2020, end: 2020
  3. NATRIUMCHLORIDE [Concomitant]
     Active Substance: SODIUM CHLORIDE
     Indication: FLUID REPLACEMENT
     Route: 041
  4. MINIRINMELT [Suspect]
     Active Substance: DESMOPRESSIN ACETATE
     Indication: DIABETES INSIPIDUS
     Dosage: 720 UG, DAILY
     Route: 065
     Dates: start: 2020, end: 2020
  5. MINIRINMELT [Suspect]
     Active Substance: DESMOPRESSIN ACETATE
     Dosage: 60 UG, GRADUALLY INCREASING DOSE
     Route: 065
     Dates: start: 202004, end: 2020
  6. DESMOPRESSIN KYOWA [Suspect]
     Active Substance: DESMOPRESSIN
     Indication: DIABETES INSIPIDUS
     Dosage: 30 UG, DAILY
     Route: 065
     Dates: start: 202011

REACTIONS (5)
  - Therapeutic response decreased [Not Recovered/Not Resolved]
  - Dehydration [Unknown]
  - Overdose [Recovered/Resolved]
  - Pneumonia aspiration [Recovering/Resolving]
  - Off label use [Recovered/Resolved]

NARRATIVE: CASE EVENT DATE: 2020
